FAERS Safety Report 4977099-7 (Version None)
Quarter: 2006Q2

REPORT INFORMATION
  Report Type: 
  Country: None (occurrence: None)
  Receive Date: 20060412
  Receipt Date: 20060402
  Transmission Date: 20061013
  Serious: No
  Sender: FDA-Public Use
  Company Number: 06H-163-0306992-00

PATIENT

DRUGS (8)
  1. ETOPOSIDE [Suspect]
     Indication: CHEMOTHERAPY
     Dosage: 0.4 MG MILLIGRAM/MILLITITERS, INTRAVENOUS INFUSION
     Route: 042
  2. MESNA [Concomitant]
  3. SODIUM CHLORIDE [Concomitant]
  4. ANTIEMETIC (ANTIEMETIC AND ANTINAUSEANTS) [Concomitant]
  5. NEUPOGEN [Concomitant]
  6. PERIDEX (CHLORHEXIDINE GLUCONATE) [Concomitant]
  7. AMPHOTERICIN B [Concomitant]
  8. CYCLOPHOSPHAMIDE [Concomitant]

REACTIONS (3)
  - DRUG TOXICITY [None]
  - METABOLIC ACIDOSIS [None]
  - RESPIRATORY FAILURE [None]
